FAERS Safety Report 7707992-3 (Version None)
Quarter: 2011Q3

REPORT INFORMATION
  Report Type: 
  Country: None (occurrence: None)
  Receive Date: 20110824
  Receipt Date: 20110815
  Transmission Date: 20111222
  Serious: Yes (Death, Other)
  Sender: FDA-Public Use
  Company Number: CELGENEUS-087-21880-11020523

PATIENT
  Sex: Female

DRUGS (6)
  1. REVLIMID [Suspect]
     Indication: MULTIPLE MYELOMA
     Dosage: 15 MILLIGRAM
     Route: 048
     Dates: start: 20101104, end: 20101105
  2. LENDEM [Concomitant]
     Indication: PROPHYLAXIS
     Dosage: .25 MILLIGRAM
     Route: 048
     Dates: start: 20100801, end: 20101112
  3. RABEPRAZOLE SODIUM [Concomitant]
     Dosage: 10 MILLIGRAM
     Route: 048
     Dates: start: 20100801, end: 20101112
  4. LASIX [Concomitant]
     Dosage: 40 MILLIGRAM
     Route: 048
     Dates: start: 20100801, end: 20101112
  5. ALDACTONE [Concomitant]
     Dosage: 25 MILLIGRAM
     Route: 048
     Dates: start: 20100801, end: 20101112
  6. SULFAMETHOXAZOLE [Concomitant]
     Indication: PROPHYLAXIS
     Dosage: 1 TABLET
     Route: 048
     Dates: start: 20100501, end: 20101112

REACTIONS (5)
  - THROMBOCYTOPENIA [None]
  - PNEUMONIA [None]
  - NEUTROPENIA [None]
  - MULTIPLE MYELOMA [None]
  - CEREBRAL HAEMORRHAGE [None]
